FAERS Safety Report 21399842 (Version 4)
Quarter: 2025Q3

REPORT INFORMATION
  Report Type: Spontaneous
  Country: US (occurrence: US)
  Receive Date: 20221002
  Receipt Date: 20250825
  Transmission Date: 20251020
  Serious: No
  Sender: SANOFI AVENTIS
  Company Number: US-SA-SAC20220930000205

PATIENT
  Age: 53 Year
  Sex: Female

DRUGS (1)
  1. DUPIXENT [Suspect]
     Active Substance: DUPILUMAB
     Indication: Nasal polyps
     Dosage: 300 MG, QOW
     Route: 058
     Dates: start: 20220908

REACTIONS (7)
  - Productive cough [Unknown]
  - Condition aggravated [Unknown]
  - Tendonitis [Unknown]
  - Insomnia [Unknown]
  - Arthralgia [Unknown]
  - Gait disturbance [Unknown]
  - Injection site pain [Unknown]
